FAERS Safety Report 7969087-3 (Version None)
Quarter: 2011Q4

REPORT INFORMATION
  Report Type: 
  Country: None (occurrence: None)
  Receive Date: 20111208
  Receipt Date: 20111122
  Transmission Date: 20120403
  Serious: Yes (Other)
  Sender: FDA-Public Use
  Company Number: 2011AP002614

PATIENT
  Age: 57 Year
  Sex: Female

DRUGS (2)
  1. LITHIUM CARBONATE [Suspect]
     Indication: BIPOLAR DISORDER
  2. LEVOTHYROXINE SODIUM [Concomitant]

REACTIONS (3)
  - NEPHROPATHY [None]
  - RENAL CYST [None]
  - RENAL FAILURE [None]
